FAERS Safety Report 4383240-X (Version None)
Quarter: 2004Q2

REPORT INFORMATION
  Report Type: 
  Country: None (occurrence: None)
  Receive Date: 20040618
  Receipt Date: 20040603
  Transmission Date: 20050107
  Serious: Yes (Hospitalization)
  Sender: FDA-Public Use
  Company Number: 700126

PATIENT
  Age: 71 Year
  Sex: Male
  Weight: 61.5 kg

DRUGS (10)
  1. EXTRANEAL [Suspect]
     Indication: PERITONEAL DIALYSIS
     Dosage: 1.5 L; QD; INTRAPERITONEAL
     Dates: start: 20031210, end: 20040524
  2. TICLOPIDINE HCI [Suspect]
     Dosage: 100 MG; QD; ORAL
     Route: 048
     Dates: end: 20040513
  3. LEVOTHYROXINE SODIUM [Suspect]
     Dosage: 75 UG; QD; ORAL
     Route: 048
     Dates: start: 20030301, end: 20040513
  4. ALFACALCIDOL (ALFACALCIDOL) [Suspect]
     Dosage: 0.5 UG ;QD; ORAL
     Route: 048
     Dates: start: 20031001, end: 20040513
  5. TELMISARTAN (TELMISARTAN) [Suspect]
     Dosage: 20 MG; QD; ORAL
     Route: 048
     Dates: start: 20031201, end: 20040513
  6. FUROSEMIDE [Suspect]
     Dosage: 160 MG; QD; ORAL
     Route: 048
     Dates: start: 20031001, end: 20040513
  7. FLUCONAZOLE [Suspect]
     Dosage: 200 MG; QD; ORAL
     Route: 048
     Dates: start: 20040201, end: 20040505
  8. EPOETIN ALFA (EPOETIN ALFA) [Suspect]
     Dosage: 12000 UNITS; Q2W; SUBCUTANEOUS
     Route: 058
     Dates: start: 20040301
  9. DIANEAL [Concomitant]
  10. NIFEDIPINE [Concomitant]

REACTIONS (7)
  - DRUG INEFFECTIVE [None]
  - ERYTHEMA [None]
  - GENERALISED OEDEMA [None]
  - PRURITUS GENERALISED [None]
  - PYREXIA [None]
  - RASH GENERALISED [None]
  - STOMATITIS [None]
